FAERS Safety Report 8284582-8 (Version None)
Quarter: 2012Q2

REPORT INFORMATION
  Report Type: 
  Country: None (occurrence: None)
  Receive Date: 20120413
  Receipt Date: 20111223
  Transmission Date: 20120825
  Serious: No
  Sender: FDA-Public Use
  Company Number: US-ASTRAZENECA-2011SE68116

PATIENT
  Age: 54 Year
  Sex: Female
  Weight: 78 kg

DRUGS (3)
  1. GLUCOPHAGE [Concomitant]
     Indication: DIABETES MELLITUS
  2. NEXIUM [Suspect]
     Indication: GASTROOESOPHAGEAL REFLUX DISEASE
     Route: 048
  3. PROZAC [Concomitant]

REACTIONS (2)
  - MEDICATION RESIDUE [None]
  - THERAPEUTIC RESPONSE UNEXPECTED [None]
